FAERS Safety Report 6421874-9 (Version None)
Quarter: 2009Q4

REPORT INFORMATION
  Report Type: 
  Country: None (occurrence: None)
  Receive Date: 20091029
  Receipt Date: 20091029
  Transmission Date: 20100525
  Serious: Yes (Hospitalization)
  Sender: FDA-Public Use
  Company Number: None

PATIENT
  Age: 76 Year
  Sex: Female
  Weight: 58.5 kg

DRUGS (1)
  1. TAMIFLU [Suspect]
     Indication: INFLUENZA
     Dosage: 75 MG DAILY PO
     Route: 048
     Dates: start: 20091013, end: 20091019

REACTIONS (12)
  - DROOLING [None]
  - DYSPHAGIA [None]
  - LIP SWELLING [None]
  - LIP ULCERATION [None]
  - MOUTH HAEMORRHAGE [None]
  - MOUTH ULCERATION [None]
  - MUCOSAL NECROSIS [None]
  - OEDEMA MOUTH [None]
  - PAIN [None]
  - PURULENCE [None]
  - SPEECH DISORDER [None]
  - STEVENS-JOHNSON SYNDROME [None]
